FAERS Safety Report 5870173-2 (Version None)
Quarter: 2008Q3

REPORT INFORMATION
  Report Type: 
  Country: None (occurrence: None)
  Receive Date: 20080904
  Receipt Date: 20080826
  Transmission Date: 20090109
  Serious: Yes (Hospitalization)
  Sender: FDA-Public Use
  Company Number: US-PFIZER INC-2008071405

PATIENT
  Sex: Female
  Weight: 110.7 kg

DRUGS (19)
  1. GLUCOTROL XL [Suspect]
     Indication: TYPE 2 DIABETES MELLITUS
     Route: 048
  2. CORTICOSTEROIDS [Concomitant]
  3. NEURONTIN [Concomitant]
  4. IBUPROFEN [Concomitant]
  5. HYDROMORPHONE HCL [Concomitant]
  6. MORPHINE [Concomitant]
     Route: 037
  7. SKELAXIN [Concomitant]
  8. VALSARTAN [Concomitant]
  9. NORVASC [Concomitant]
  10. LASIX [Concomitant]
  11. POTASSIUM CHLORIDE [Concomitant]
  12. NEXIUM [Concomitant]
  13. PRAVASTATIN [Concomitant]
  14. MONTELUKAST SODIUM [Concomitant]
  15. PREDNISONE TAB [Concomitant]
  16. ACEBUTOLOL [Concomitant]
  17. GUAIFENESIN [Concomitant]
  18. CALCIUM [Concomitant]
  19. MAGNESIUM SULFATE [Concomitant]

REACTIONS (6)
  - DIABETES MELLITUS INADEQUATE CONTROL [None]
  - DRUG WITHDRAWAL SYNDROME [None]
  - FAILURE OF IMPLANT [None]
  - HAEMOGLOBIN INCREASED [None]
  - IRRITABILITY [None]
  - TREMOR [None]
